FAERS Safety Report 11359484 (Version 1)
Quarter: 2015Q3

REPORT INFORMATION
  Report Type: Report from Study
  Country: CA (occurrence: CA)
  Receive Date: 20150807
  Receipt Date: 20150807
  Transmission Date: 20151125
  Serious: Yes (Other)
  Sender: FDA-Public Use
  Company Number: PHHY2015CA058402

PATIENT
  Sex: Female

DRUGS (1)
  1. EXJADE [Suspect]
     Active Substance: DEFERASIROX
     Indication: IRON OVERLOAD
     Dosage: 250 MG, QD
     Route: 048
     Dates: start: 20150325

REACTIONS (5)
  - Wrong technique in product usage process [Unknown]
  - Bowel movement irregularity [Unknown]
  - Feeling abnormal [Unknown]
  - Constipation [Unknown]
  - Pain [Unknown]
